FAERS Safety Report 8304095-4 (Version None)
Quarter: 2012Q2

REPORT INFORMATION
  Report Type: 
  Country: None (occurrence: None)
  Receive Date: 20120423
  Receipt Date: 20120415
  Transmission Date: 20120825
  Serious: No
  Sender: FDA-Public Use
  Company Number: US-BAYER-2012-038774

PATIENT

DRUGS (3)
  1. MOTRIN [Concomitant]
  2. TYLENOL W/ CODEINE NO. 3 [Concomitant]
  3. ALEVE (CAPLET) [Suspect]

REACTIONS (1)
  - PAIN [None]
